FAERS Safety Report 25877811 (Version 1)
Quarter: 2025Q4

REPORT INFORMATION
  Report Type: Spontaneous
  Country: US (occurrence: US)
  Receive Date: 20251003
  Receipt Date: 20251003
  Transmission Date: 20260118
  Serious: Yes (Hospitalization)
  Sender: AMGEN
  Company Number: US-AMGEN-USASP2025195262

PATIENT
  Age: 23 Year
  Sex: Female

DRUGS (17)
  1. DARBEPOETIN ALFA [Suspect]
     Active Substance: DARBEPOETIN ALFA
     Indication: Haemolytic anaemia
     Dosage: UNK
     Route: 058
  2. DARBEPOETIN ALFA [Suspect]
     Active Substance: DARBEPOETIN ALFA
     Indication: Reticulocytopenia
     Dosage: 100 MICROGRAM, EVERY FORTY-EIGHT HOURS
     Route: 058
  3. DARBEPOETIN ALFA [Suspect]
     Active Substance: DARBEPOETIN ALFA
     Dosage: 200 MICROGRAM, QOD
     Route: 058
  4. PREDNISONE [Suspect]
     Active Substance: PREDNISONE
     Indication: Haemolytic anaemia
     Dosage: 1 MILLIGRAM/KILOGRAM, QD
     Route: 065
  5. Immunoglobulin [Concomitant]
     Indication: Haemolytic anaemia
     Dosage: UNK
     Route: 040
  6. Immunoglobulin [Concomitant]
     Dosage: 400 MILLIGRAM/KILOGRAM, QD, FIVE DOSES
     Route: 040
  7. CORTICOSTEROID NOS [Concomitant]
     Active Substance: CORTICOSTEROID NOS
     Indication: Haemolytic anaemia
     Dosage: UNK
  8. ECULIZUMAB [Concomitant]
     Active Substance: ECULIZUMAB
     Indication: Haemolytic anaemia
     Dosage: UNK, ONE DOSE
  9. ECULIZUMAB [Concomitant]
     Active Substance: ECULIZUMAB
     Dosage: 900 MILLIGRAM
  10. HYDROXYUREA [Concomitant]
     Active Substance: HYDROXYUREA
     Dosage: UNK
  11. HYDROXYUREA [Concomitant]
     Active Substance: HYDROXYUREA
     Dosage: 500 MILLIGRAM, QD, MONDAYS THROUGH FRIDAYS
  12. HYDROXYUREA [Concomitant]
     Active Substance: HYDROXYUREA
     Dosage: 1000 MILLIGRAM, QD (AVERAGE 11 MG/KG/DAY), SATURDAYS AND SUNDAYS
  13. HYDROXYUREA [Concomitant]
     Active Substance: HYDROXYUREA
     Dosage: 1000 MILLIGRAM, QD, MONDAYS THROUGH FRIDAYS
  14. HYDROXYUREA [Concomitant]
     Active Substance: HYDROXYUREA
     Dosage: 500 MILLIGRAM, QD, ON SATURDAY AND SUNDAYS (AVERAGE DOSE 15/MG/DAY)
  15. HYDROXYUREA [Concomitant]
     Active Substance: HYDROXYUREA
     Dosage: 1000 MILLIGRAM, QD (20 MG/KG/DAY).
  16. BETAMETHASONE [Concomitant]
     Active Substance: BETAMETHASONE
     Indication: Maternal therapy to enhance foetal lung maturity
     Dosage: 12 MILLIGRAM, QD, TWO DOSES
  17. HUMAN RED BLOOD CELL [Concomitant]
     Active Substance: HUMAN RED BLOOD CELL
     Dosage: UNK UNK, QHS (ONE UNIT)

REACTIONS (8)
  - Haemoglobin decreased [Recovering/Resolving]
  - Delayed umbilical cord clamping [Unknown]
  - Tachycardia [Unknown]
  - Blood lactate dehydrogenase increased [Unknown]
  - Sickle cell anaemia with crisis [Recovered/Resolved]
  - Reticulocytopenia [Unknown]
  - Haemorrhage [Unknown]
  - Maternal exposure during pregnancy [Unknown]
